FAERS Safety Report 12853878 (Version 15)
Quarter: 2020Q4

REPORT INFORMATION
  Report Type: Report from Study
  Country: BR (occurrence: BR)
  Receive Date: 20161017
  Receipt Date: 20201217
  Transmission Date: 20210113
  Serious: Yes (Hospitalization, Other)
  Sender: FDA-Public Use
  Company Number: PHHY2015BR093893

PATIENT
  Age: 65 Year
  Sex: Female
  Weight: 80 kg

DRUGS (35)
  1. DICLOFENAC [Suspect]
     Active Substance: DICLOFENAC
     Indication: CONTUSION
     Dosage: UNK
     Route: 065
  2. PURAN [Concomitant]
     Active Substance: LEVOTHYROXINE SODIUM
     Indication: AUTOIMMUNE THYROIDITIS
     Dosage: 125 MG, QD
     Route: 048
  3. SANDOSTATIN LAR DEPOT [Suspect]
     Active Substance: OCTREOTIDE ACETATE
     Dosage: 30 MG, QMO (EVERY 30 DAYS)
     Route: 030
  4. AAS [Concomitant]
     Active Substance: ASPIRIN
     Indication: HYPERTENSION
     Dosage: 1 DF, QD, 4 YEARS AGO
     Route: 048
  5. SANDOSTATIN LAR DEPOT [Suspect]
     Active Substance: OCTREOTIDE ACETATE
     Indication: ACROMEGALY
     Dosage: 10 MG, UNK
     Route: 030
  6. SANDOSTATIN LAR DEPOT [Suspect]
     Active Substance: OCTREOTIDE ACETATE
     Dosage: 20 MG, UNK
     Route: 030
  7. CABERGOLINA [Concomitant]
     Active Substance: CABERGOLINE
     Indication: ACROMEGALY
     Dosage: 1 DF, QOD
     Route: 048
     Dates: start: 201605
  8. MODURETIC 5-50 [Concomitant]
     Active Substance: AMILORIDE HYDROCHLORIDE\HYDROCHLOROTHIAZIDE
     Dosage: 12.5 MG, QD
     Route: 048
  9. FAMOTIDINE. [Concomitant]
     Active Substance: FAMOTIDINE
     Indication: PAIN
  10. CARISOPRODOL. [Concomitant]
     Active Substance: CARISOPRODOL
     Indication: PAIN
  11. SANDOSTATIN LAR DEPOT [Suspect]
     Active Substance: OCTREOTIDE ACETATE
     Dosage: 30 MG, UNK
     Route: 030
  12. DICLOFENAC [Suspect]
     Active Substance: DICLOFENAC
     Indication: MYALGIA
  13. LOSARTAN. [Concomitant]
     Active Substance: LOSARTAN
     Indication: HYPERTENSION
     Dosage: 2 DF, QD
     Route: 048
  14. MODURETIC 5-50 [Concomitant]
     Active Substance: AMILORIDE HYDROCHLORIDE\HYDROCHLOROTHIAZIDE
     Indication: HYPERTENSION
     Dosage: 2.5 MG, QD, 4 YEARS AGO
     Route: 048
  15. CARISOPRODOL. [Concomitant]
     Active Substance: CARISOPRODOL
     Indication: HEADACHE
     Dosage: 1 DF, QD, 4 YEARS AGO
     Route: 048
  16. DICLOFENAC SODIUM. [Concomitant]
     Active Substance: DICLOFENAC SODIUM
     Indication: PAIN
  17. PARACETAMOL [Concomitant]
     Active Substance: ACETAMINOPHEN
     Indication: HEADACHE
     Dosage: 1 DF, QD, 4 YEARS AGO
     Route: 048
  18. ANHYDROUS CAFFEINE [Concomitant]
     Active Substance: CAFFEINE
     Indication: PAIN
     Dosage: 1 DF, QD, 4 YEARS AGO
     Route: 048
  19. OXYGEN. [Concomitant]
     Active Substance: OXYGEN
     Indication: EMPHYSEMA
     Dosage: UNK
     Route: 065
  20. SANDOSTATIN LAR DEPOT [Suspect]
     Active Substance: OCTREOTIDE ACETATE
     Dosage: UNK
     Route: 030
     Dates: start: 20190108
  21. PURAN [Concomitant]
     Active Substance: LEVOTHYROXINE SODIUM
     Indication: HYPOTHYROIDISM
     Dosage: 100 UG, QD, 4 YEARS AGO
     Route: 048
  22. SANDOSTATIN LAR DEPOT [Suspect]
     Active Substance: OCTREOTIDE ACETATE
     Dosage: 10 MG, UNK
     Route: 030
  23. MODURETIC 5-50 [Concomitant]
     Active Substance: AMILORIDE HYDROCHLORIDE\HYDROCHLOROTHIAZIDE
     Dosage: 2.5 MG, QD
     Route: 048
  24. PURAN [Concomitant]
     Active Substance: LEVOTHYROXINE SODIUM
     Dosage: 100 MG, QD
     Route: 048
  25. PARACETAMOL [Concomitant]
     Active Substance: ACETAMINOPHEN
     Indication: PAIN
  26. ANHYDROUS CAFFEINE [Concomitant]
     Active Substance: CAFFEINE
     Indication: HEADACHE
  27. SANDOSTATIN LAR DEPOT [Suspect]
     Active Substance: OCTREOTIDE ACETATE
     Dosage: 30 MG, QMO (1 APPLICATION EVERY 28 DAYS)
     Route: 030
  28. SANDOSTATIN LAR DEPOT [Suspect]
     Active Substance: OCTREOTIDE ACETATE
     Dosage: 20 MG, UNK
     Route: 030
  29. DICLOFENAC SODIUM. [Concomitant]
     Active Substance: DICLOFENAC SODIUM
     Indication: HEADACHE
     Dosage: 1 DF, QD,4 YEARS AGO
     Route: 048
  30. SANDOSTATIN LAR DEPOT [Suspect]
     Active Substance: OCTREOTIDE ACETATE
     Dosage: 20 MG, UNK
     Route: 030
     Dates: start: 2014
  31. SANDOSTATIN LAR DEPOT [Suspect]
     Active Substance: OCTREOTIDE ACETATE
     Dosage: 30 MG, UNK
     Route: 030
     Dates: start: 20141201
  32. SANDOSTATIN LAR DEPOT [Suspect]
     Active Substance: OCTREOTIDE ACETATE
     Dosage: 30 MG, QMO
     Route: 065
  33. RIVOTRIL [Concomitant]
     Active Substance: CLONAZEPAM
     Indication: SLEEP DISORDER
     Dosage: 1 DF, QD
     Route: 048
  34. FAMOTIDINE. [Concomitant]
     Active Substance: FAMOTIDINE
     Indication: HEADACHE
     Dosage: 1 DF, QD,4 YEARS AGO
     Route: 048
  35. LORATAMED [Concomitant]
     Active Substance: LORATADINE
     Indication: PRODUCT USED FOR UNKNOWN INDICATION
     Dosage: UNK
     Route: 065

REACTIONS (85)
  - Cerebrovascular accident [Recovered/Resolved]
  - Gait inability [Not Recovered/Not Resolved]
  - Gait disturbance [Unknown]
  - Osteoarthritis [Not Recovered/Not Resolved]
  - Malaise [Unknown]
  - Asthma [Unknown]
  - Finger deformity [Unknown]
  - Musculoskeletal pain [Unknown]
  - Peripheral coldness [Unknown]
  - Cerebrovascular accident [Recovered/Resolved]
  - Weight increased [Recovering/Resolving]
  - Chest injury [Recovering/Resolving]
  - Crying [Recovering/Resolving]
  - Musculoskeletal stiffness [Recovering/Resolving]
  - Hypoacusis [Unknown]
  - Dizziness [Unknown]
  - Memory impairment [Unknown]
  - Pyrexia [Not Recovered/Not Resolved]
  - Mouth injury [Not Recovered/Not Resolved]
  - Erythema [Not Recovered/Not Resolved]
  - Dysgraphia [Unknown]
  - Skin discolouration [Recovering/Resolving]
  - Overweight [Not Recovered/Not Resolved]
  - Communication disorder [Unknown]
  - Groin pain [Unknown]
  - Aneurysm [Unknown]
  - Insomnia [Unknown]
  - Breath odour [Unknown]
  - Myalgia [Unknown]
  - Toothache [Unknown]
  - Peripheral swelling [Unknown]
  - Application site discomfort [Recovered/Resolved]
  - Hypersensitivity [Not Recovered/Not Resolved]
  - Speech disorder [Unknown]
  - Cerebrovascular accident [Unknown]
  - Intracranial aneurysm [Unknown]
  - Contusion [Recovering/Resolving]
  - Bone deformity [Recovering/Resolving]
  - Haematoma [Unknown]
  - Tooth fracture [Unknown]
  - Disorientation [Recovered/Resolved]
  - Pruritus [Not Recovered/Not Resolved]
  - Dysstasia [Not Recovered/Not Resolved]
  - Fall [Recovering/Resolving]
  - Depression [Unknown]
  - Psychiatric symptom [Unknown]
  - Decreased activity [Unknown]
  - Fluid retention [Unknown]
  - Feeling abnormal [Unknown]
  - Tooth disorder [Unknown]
  - Haemorrhage intracranial [Unknown]
  - Haemorrhage [Unknown]
  - Lung disorder [Unknown]
  - Tooth loss [Unknown]
  - Hand deformity [Unknown]
  - Drug ineffective [Unknown]
  - Application site pain [Recovered/Resolved]
  - Loss of consciousness [Recovered/Resolved]
  - Pain [Recovering/Resolving]
  - Condition aggravated [Not Recovered/Not Resolved]
  - Pain in extremity [Recovering/Resolving]
  - Bone pain [Unknown]
  - Confusional state [Unknown]
  - Somnolence [Unknown]
  - Weight decreased [Not Recovered/Not Resolved]
  - Dyspnoea [Unknown]
  - Fatigue [Unknown]
  - Needle issue [Unknown]
  - Discouragement [Unknown]
  - Arthralgia [Not Recovered/Not Resolved]
  - Facial pain [Not Recovered/Not Resolved]
  - Paraesthesia [Not Recovered/Not Resolved]
  - Abdominal pain [Recovered/Resolved]
  - Accident at home [Recovering/Resolving]
  - Joint injury [Unknown]
  - Phobia [Unknown]
  - Impaired work ability [Unknown]
  - Cognitive disorder [Unknown]
  - Asthenia [Unknown]
  - Headache [Recovered/Resolved]
  - Bruxism [Unknown]
  - Application site mass [Recovered/Resolved]
  - Swelling [Not Recovered/Not Resolved]
  - Feeding disorder [Not Recovered/Not Resolved]
  - Head injury [Unknown]

NARRATIVE: CASE EVENT DATE: 2014
